FAERS Safety Report 24337869 (Version 1)
Quarter: 2024Q3

REPORT INFORMATION
  Report Type: Report from Study
  Country: CA (occurrence: CA)
  Receive Date: 20240919
  Receipt Date: 20240919
  Transmission Date: 20241017
  Serious: Yes (Other)
  Sender: JOHNSON AND JOHNSON
  Company Number: CA-JNJFOC-20240554393

PATIENT
  Age: 15 Year
  Sex: Male
  Weight: 35 kg

DRUGS (3)
  1. REMICADE [Suspect]
     Active Substance: INFLIXIMAB
     Indication: Crohn^s disease
     Route: 041
     Dates: start: 20230502
  2. REMICADE [Suspect]
     Active Substance: INFLIXIMAB
     Route: 041
     Dates: start: 20230502
  3. REMICADE [Suspect]
     Active Substance: INFLIXIMAB
     Dosage: THERAPY END DATE : 12-SEP-2024
     Route: 041
     Dates: start: 20230418

REACTIONS (4)
  - Crohn^s disease [Unknown]
  - Drug specific antibody [Unknown]
  - Drug level decreased [Unknown]
  - Off label use [Unknown]

NARRATIVE: CASE EVENT DATE: 20240507
